FAERS Safety Report 5505143-7 (Version None)
Quarter: 2007Q4

REPORT INFORMATION
  Report Type: 
  Country: None (occurrence: None)
  Receive Date: 20071031
  Receipt Date: 20071018
  Transmission Date: 20080405
  Serious: Yes (Other)
  Sender: FDA-Public Use
  Company Number: 2007329587

PATIENT
  Age: 57 Year
  Sex: Female
  Weight: 61.2356 kg

DRUGS (1)
  1. LISTERINE ESSENTIAL CARE TOOTHPASTE (MENTHOL, METHYL SALICYLATE SODIUM [Suspect]
     Indication: DENTAL PLAQUE
     Dosage: ONCE A DAY ORAL
     Route: 048
     Dates: start: 20070822, end: 20070824

REACTIONS (3)
  - APHTHOUS STOMATITIS [None]
  - CAUSTIC INJURY [None]
  - SALIVARY GLAND DISORDER [None]
